FAERS Safety Report 6751826-0 (Version None)
Quarter: 2010Q2

REPORT INFORMATION
  Report Type: 
  Country: None (occurrence: None)
  Receive Date: 20100602
  Receipt Date: 20100602
  Transmission Date: 20101027
  Serious: Yes (Hospitalization)
  Sender: FDA-Public Use
  Company Number: None

PATIENT
  Age: 39 Month
  Sex: Male
  Weight: 14.5151 kg

DRUGS (1)
  1. CHILDREN'S MOTRIN [Suspect]
     Indication: PYREXIA
     Dosage: 5 ML 1
     Dates: start: 20100321

REACTIONS (4)
  - HAEMATURIA [None]
  - HAEMOLYTIC ANAEMIA [None]
  - LABORATORY TEST ABNORMAL [None]
  - PRODUCT QUALITY ISSUE [None]
